FAERS Safety Report 14832495 (Version 1)
Quarter: 2018Q2

REPORT INFORMATION
  Report Type: Spontaneous
  Country: FR (occurrence: FR)
  Receive Date: 20180501
  Receipt Date: 20180501
  Transmission Date: 20180711
  Serious: Yes (Hospitalization)
  Sender: FDA-Public Use
  Company Number: FR-LANNETT COMPANY, INC.-FR-2018LAN000662

PATIENT
  Age: 66 Year
  Sex: Male

DRUGS (8)
  1. OXACILLIN [Concomitant]
     Active Substance: OXACILLIN SODIUM
     Indication: ENDOCARDITIS STAPHYLOCOCCAL
  2. GENTAMICIN. [Concomitant]
     Active Substance: GENTAMICIN
     Indication: ENDOCARDITIS STAPHYLOCOCCAL
     Dosage: UNK
  3. RIFAMPIN. [Suspect]
     Active Substance: RIFAMPIN
     Indication: CEREBRAL ARTERY EMBOLISM
  4. OXACILLIN [Concomitant]
     Active Substance: OXACILLIN SODIUM
     Indication: CEREBRAL ARTERY EMBOLISM
     Dosage: UNK
  5. GENTAMICIN. [Concomitant]
     Active Substance: GENTAMICIN
     Indication: CEREBRAL ARTERY EMBOLISM
  6. CEFAZOLIN [Suspect]
     Active Substance: CEFAZOLIN
     Indication: ENDOCARDITIS STAPHYLOCOCCAL
     Dosage: 4 G, QD
     Route: 042
  7. RIFAMPIN. [Suspect]
     Active Substance: RIFAMPIN
     Indication: ENDOCARDITIS STAPHYLOCOCCAL
     Dosage: 600 MG, BID
     Route: 065
  8. CEFAZOLIN [Suspect]
     Active Substance: CEFAZOLIN
     Indication: CEREBRAL ARTERY EMBOLISM
     Dosage: 8 G, QD
     Route: 042

REACTIONS (3)
  - Gastrointestinal haemorrhage [Unknown]
  - Shock haemorrhagic [Unknown]
  - Hypoprothrombinaemia [Unknown]
